FAERS Safety Report 8970112 (Version 1)
Quarter: 2012Q4

REPORT INFORMATION
  Report Type: 
  Country: CA (occurrence: CN)
  Receive Date: 20121217
  Receipt Date: 20121217
  Transmission Date: 20130627
  Serious: Yes (Disabling, Other)
  Sender: FDA-Public Use
  Company Number: PHHY2012CN114063

PATIENT
  Sex: Male

DRUGS (1)
  1. LESCOL [Suspect]
     Indication: HYPERLIPIDAEMIA
     Dosage: 40 mg, QD
     Route: 048
     Dates: start: 20090301, end: 20090714

REACTIONS (2)
  - Radiculitis brachial [Not Recovered/Not Resolved]
  - Hypoaesthesia [Not Recovered/Not Resolved]
